FAERS Safety Report 5371161-5 (Version None)
Quarter: 2007Q2

REPORT INFORMATION
  Report Type: 
  Country: None (occurrence: None)
  Receive Date: 20070615
  Receipt Date: 20070222
  Transmission Date: 20071010
  Serious: Yes (Hospitalization, Other)
  Sender: FDA-Public Use
  Company Number: 200711184US

PATIENT
  Age: 10 Year
  Sex: Male

DRUGS (12)
  1. LANTUS [Suspect]
     Indication: DIABETES MELLITUS INSULIN-DEPENDENT
     Dosage: 20 U QPM
     Dates: start: 20060101
  2. LANTUS [Suspect]
     Indication: DIABETES MELLITUS INSULIN-DEPENDENT
     Dosage: 24 U QPM
  3. LANTUS [Suspect]
     Indication: DIABETES MELLITUS INSULIN-DEPENDENT
     Dosage: 20 U
     Dates: start: 20070101
  4. LANTUS [Suspect]
     Indication: DIABETES MELLITUS INSULIN-DEPENDENT
     Dosage: 18 U
     Dates: start: 20070201, end: 20070201
  5. LANTUS [Suspect]
     Indication: DIABETES MELLITUS INSULIN-DEPENDENT
     Dosage: 12 U
     Dates: start: 20070201, end: 20070201
  6. LANTUS [Suspect]
     Indication: DIABETES MELLITUS INSULIN-DEPENDENT
     Dosage: 15 U
     Dates: start: 20070201, end: 20070201
  7. LANTUS [Suspect]
     Indication: DIABETES MELLITUS INSULIN-DEPENDENT
     Dosage: 14 U
     Dates: start: 20070201
  8. INSULIN ASPART [Concomitant]
  9. SALBUTAMOL [Concomitant]
  10. FEXOFENADINE [Concomitant]
  11. FLUTICASONE PROPIONATE, SALMETEROL XINAFOATE [Concomitant]
  12. TRIAMCINOLONE ACETONIDE [Concomitant]

REACTIONS (6)
  - BLOOD GLUCOSE DECREASED [None]
  - BLOOD GLUCOSE INCREASED [None]
  - COGNITIVE DISORDER [None]
  - DRUG INEFFECTIVE [None]
  - HYPOGLYCAEMIA [None]
  - INJECTION SITE MASS [None]
